FAERS Safety Report 8998994 (Version 1)
Quarter: 2013Q1

REPORT INFORMATION
  Report Type: Spontaneous
  Country: US (occurrence: US)
  Receive Date: 20130103
  Receipt Date: 20130103
  Transmission Date: 20140127
  Serious: No
  Sender: FDA-Public Use
  Company Number: US-PFIZER INC-2012331283

PATIENT
  Age: 82 Year
  Sex: Female
  Weight: 59 kg

DRUGS (4)
  1. MEDROXYPROGESTERONE ACETATE [Suspect]
     Indication: HORMONE REPLACEMENT THERAPY
     Dosage: UNK
  2. ESTRADIOL [Concomitant]
     Dosage: UNK
  3. PREMPRO [Concomitant]
     Indication: MENOPAUSE
     Dosage: 0.3/1.5 MG
  4. SYNTHROID [Concomitant]
     Dosage: 50 MG, DAILY

REACTIONS (1)
  - Hypersensitivity [Unknown]
